FAERS Safety Report 8775138 (Version 1)
Quarter: 2012Q4

REPORT INFORMATION
  Report Type: 
  Country: FR (occurrence: FR)
  Receive Date: 20120910
  Receipt Date: 20120910
  Transmission Date: 20130627
  Serious: Yes (Hospitalization)
  Sender: FDA-Public Use
  Company Number: FR-GE HEALTHCARE MEDICAL DIAGNOSTICS-OMPQ-NO-1209S-0906

PATIENT
  Age: 9 Year
  Sex: Female
  Weight: 24 kg

DRUGS (8)
  1. OMNIPAQUE [Suspect]
     Indication: PRODUCT USED FOR UNKNOWN INDICATION
     Route: 042
     Dates: start: 20120807, end: 20120807
  2. VANCOMYCINE [Suspect]
  3. GENTAMYCINE [Suspect]
     Dates: start: 20120805, end: 20120806
  4. NALBUPHINE [Suspect]
     Dates: end: 20120806
  5. ADVIL [Concomitant]
  6. RIFADINE [Concomitant]
  7. PARACETAMOL [Concomitant]
  8. ORBENINE [Concomitant]

REACTIONS (5)
  - Renal failure acute [Recovered/Resolved]
  - Hyperkalaemia [None]
  - Hyponatraemia [None]
  - Anaemia [None]
  - Drug level increased [None]
